FAERS Safety Report 18820172 (Version 1)
Quarter: 2021Q1

REPORT INFORMATION
  Report Type: Spontaneous
  Country: US (occurrence: US)
  Receive Date: 20210202
  Receipt Date: 20210202
  Transmission Date: 20210419
  Serious: Yes (Other)
  Sender: FDA-Public Use
  Company Number: US-COLGATE PALMOLIVE COMPANY-20210100212

PATIENT
  Age: 64 Year
  Sex: Female

DRUGS (1)
  1. COLGATE ULTRA BRITE ADVANCED WHITENING ALL IN ONE CLEAN MINT [Suspect]
     Active Substance: SODIUM FLUORIDE
     Dosage: 2?3X/DAY

REACTIONS (6)
  - Parotitis [Not Recovered/Not Resolved]
  - Illness [Not Recovered/Not Resolved]
  - Swelling face [Not Recovered/Not Resolved]
  - Salivary gland calculus [Not Recovered/Not Resolved]
  - Ear discomfort [Not Recovered/Not Resolved]
  - Pyrexia [Not Recovered/Not Resolved]

NARRATIVE: CASE EVENT DATE: 2020
